FAERS Safety Report 24314292 (Version 1)
Quarter: 2024Q3

REPORT INFORMATION
  Report Type: Report from Study
  Country: HN (occurrence: HN)
  Receive Date: 20240912
  Receipt Date: 20240912
  Transmission Date: 20241017
  Serious: Yes (Other)
  Sender: NOVARTIS
  Company Number: HN-002147023-NVSC2024HN180554

PATIENT
  Sex: Female

DRUGS (4)
  1. HYDROCHLOROTHIAZIDE\VALSARTAN [Suspect]
     Active Substance: HYDROCHLOROTHIAZIDE\VALSARTAN
     Indication: Hypertension
     Dosage: 160/12.5 MG, QD
     Route: 048
  2. HYDROCHLOROTHIAZIDE\VALSARTAN [Suspect]
     Active Substance: HYDROCHLOROTHIAZIDE\VALSARTAN
     Dosage: 1 DOSAGE FORM, QD (320/25 MG)
     Route: 048
  3. HYDROCHLOROTHIAZIDE\VALSARTAN [Suspect]
     Active Substance: HYDROCHLOROTHIAZIDE\VALSARTAN
     Dosage: 1/2 X 320/25 MG
     Route: 048
     Dates: end: 202402
  4. HYDROCHLOROTHIAZIDE\VALSARTAN [Suspect]
     Active Substance: HYDROCHLOROTHIAZIDE\VALSARTAN
     Dosage: 1/2 X 160/12.5 MG
     Route: 048

REACTIONS (5)
  - Arrhythmia [Unknown]
  - Wrong technique in product usage process [Unknown]
  - Off label use [Unknown]
  - Malaise [Unknown]
  - Anxiety [Unknown]
